FAERS Safety Report 20727559 (Version 1)
Quarter: 2022Q2

REPORT INFORMATION
  Report Type: Spontaneous
  Country: US (occurrence: None)
  Receive Date: 20220419
  Receipt Date: 20220419
  Transmission Date: 20220721
  Serious: No
  Sender: FDA-Public Use
  Company Number: US-ROCHE-2935311

PATIENT
  Sex: Female

DRUGS (9)
  1. AVASTIN [Suspect]
     Active Substance: BEVACIZUMAB
     Indication: Diabetic retinopathy
     Dosage: ADMINISTERED IN LEFT EYE ;ONGOING: NO
     Route: 050
     Dates: start: 2018
  2. AVASTIN [Suspect]
     Active Substance: BEVACIZUMAB
     Indication: Diabetic retinal oedema
  3. DORZOLAMIDE + TIMOLOL [Concomitant]
  4. TRAMADOL [Concomitant]
     Active Substance: TRAMADOL
  5. LISINOPRIL [Concomitant]
     Active Substance: LISINOPRIL
  6. LEVEMIR [Concomitant]
     Active Substance: INSULIN DETEMIR
  7. JANUMET [Concomitant]
     Active Substance: METFORMIN HYDROCHLORIDE\SITAGLIPTIN PHOSPHATE
  8. GABAPENTIN [Concomitant]
     Active Substance: GABAPENTIN
  9. FENOFIBRATE [Concomitant]
     Active Substance: FENOFIBRATE

REACTIONS (4)
  - Off label use [Unknown]
  - Off label use [Unknown]
  - Expired product administered [Unknown]
  - No adverse event [Unknown]

NARRATIVE: CASE EVENT DATE: 20180101
